FAERS Safety Report 23283957 (Version 1)
Quarter: 2023Q4

REPORT INFORMATION
  Report Type: Spontaneous
  Country: IL (occurrence: IL)
  Receive Date: 20231211
  Receipt Date: 20231211
  Transmission Date: 20240110
  Serious: Yes (Hospitalization)
  Sender: FDA-Public Use
  Company Number: IL-SANDOZ-NVSC2023IL141021

PATIENT
  Age: 53 Year
  Sex: Female
  Weight: 92 kg

DRUGS (10)
  1. FLUDARABINE [Suspect]
     Active Substance: FLUDARABINE PHOSPHATE
     Indication: Lymphodepletion
     Dosage: UNK
     Route: 065
     Dates: start: 20230131, end: 20230202
  2. ACYCLOVIR [Concomitant]
     Active Substance: ACYCLOVIR
     Indication: Antiviral prophylaxis
     Dosage: UNK
     Route: 065
     Dates: start: 20230205
  3. ACYCLOVIR [Concomitant]
     Active Substance: ACYCLOVIR
     Indication: General physical condition
  4. AMLODIPINE [Concomitant]
     Active Substance: AMLODIPINE BESYLATE
     Indication: Essential hypertension
     Dosage: UNK
     Route: 065
  5. Clonex [Concomitant]
     Indication: General physical condition
     Dosage: UNK
     Route: 065
  6. HUMAN IMMUNOGLOBULIN G [Concomitant]
     Active Substance: HUMAN IMMUNOGLOBULIN G
     Dosage: UNK
     Route: 040
     Dates: start: 20230409
  7. HUMAN IMMUNOGLOBULIN G [Concomitant]
     Active Substance: HUMAN IMMUNOGLOBULIN G
     Indication: Infection prophylaxis
     Dosage: UNK, IVIG
     Route: 065
     Dates: start: 20230409
  8. SULFAMETHOXAZOLE\TRIMETHOPRIM [Concomitant]
     Active Substance: SULFAMETHOXAZOLE\TRIMETHOPRIM
     Indication: Plasma cell myeloma
     Dosage: FORTE
     Route: 065
     Dates: start: 20211031
  9. TOCILIZUMAB [Concomitant]
     Active Substance: TOCILIZUMAB
     Indication: Cytokine release syndrome
     Dosage: UNK
     Route: 065
     Dates: start: 20230214, end: 20230214
  10. VITAMIN D [Concomitant]
     Active Substance: VITAMIN D NOS
     Indication: General physical condition
     Dosage: UNK
     Route: 065
     Dates: start: 20230205

REACTIONS (1)
  - Pelvic inflammatory disease [Recovered/Resolved]

NARRATIVE: CASE EVENT DATE: 20230619
